FAERS Safety Report 16500415 (Version 1)
Quarter: 2019Q3

REPORT INFORMATION
  Report Type: Spontaneous
  Country: US (occurrence: US)
  Receive Date: 20190628
  Receipt Date: 20190628
  Transmission Date: 20191004
  Serious: No
  Sender: FDA-Public Use
  Company Number: None

PATIENT
  Age: 78 Year
  Sex: Male

DRUGS (1)
  1. SUTENT [Suspect]
     Active Substance: SUNITINIB MALATE
     Dates: start: 20190321, end: 20190628

REACTIONS (3)
  - Decreased appetite [None]
  - Taste disorder [None]
  - Blood creatinine abnormal [None]

NARRATIVE: CASE EVENT DATE: 20190628
